FAERS Safety Report 23347714 (Version 1)
Quarter: 2023Q4

REPORT INFORMATION
  Report Type: Report from Study
  Country: DE (occurrence: DE)
  Receive Date: 20231228
  Receipt Date: 20231228
  Transmission Date: 20240109
  Serious: Yes (Other)
  Sender: FDA-Public Use
  Company Number: DE-ABBVIE-5560841

PATIENT
  Sex: Male

DRUGS (2)
  1. CARBIDOPA\LEVODOPA [Suspect]
     Active Substance: CARBIDOPA\LEVODOPA
     Indication: Parkinson^s disease
     Dosage: 2.0 ML/H, EXTRA BOLUS 1 ML, MORNING DOSE 4.1 ML?DOSE INCREASED?FIRST ADMIN DATE- DEC 2023
     Route: 050
  2. CARBIDOPA\LEVODOPA [Suspect]
     Active Substance: CARBIDOPA\LEVODOPA
     Dosage: 1.8 ML/H, EXTRA BOLUS 1 ML, MORNING DOSE 4.1 ML
     Route: 050

REACTIONS (23)
  - Transient ischaemic attack [Recovered/Resolved]
  - Coronary artery bypass [Unknown]
  - Hypertonia [Unknown]
  - Atrial fibrillation [Unknown]
  - Movement disorder [Unknown]
  - Restlessness [Unknown]
  - Subdural haematoma [Recovered/Resolved]
  - Renal cell carcinoma [Unknown]
  - Dementia [Unknown]
  - Benign prostatic hyperplasia [Unknown]
  - COVID-19 [Unknown]
  - Subdural haematoma [Unknown]
  - Device dislocation [Unknown]
  - Chronic obstructive pulmonary disease [Unknown]
  - Pneumonia [Unknown]
  - Type 2 diabetes mellitus [Unknown]
  - Nitrite urine present [Unknown]
  - Dysphagia [Unknown]
  - Somnolence [Unknown]
  - Bowel movement irregularity [Unknown]
  - Pneumonia aspiration [Unknown]
  - Joint contracture [Unknown]
  - Stress [Unknown]

NARRATIVE: CASE EVENT DATE: 20090101
